FAERS Safety Report 18992929 (Version 1)
Quarter: 2021Q1

REPORT INFORMATION
  Report Type: Report from Study
  Country: US (occurrence: US)
  Receive Date: 20210310
  Receipt Date: 20210310
  Transmission Date: 20210420
  Serious: Yes (Other)
  Sender: FDA-Public Use
  Company Number: US-IGSA-SR10008182

PATIENT
  Sex: Male
  Weight: 82 kg

DRUGS (9)
  1. VIMOVO [Concomitant]
     Active Substance: ESOMEPRAZOLE MAGNESIUM\NAPROXEN
  2. ENBREL [Concomitant]
     Active Substance: ETANERCEPT
  3. SALINE                             /00075401/ [Concomitant]
     Active Substance: SODIUM CHLORIDE
  4. NAPROSYN [Concomitant]
     Active Substance: NAPROXEN
  5. CALCIUM 600 + D [Concomitant]
     Active Substance: CALCIUM\VITAMIN D
  6. COLCHICINE. [Concomitant]
     Active Substance: COLCHICINE
  7. SULFASALAZINE. [Concomitant]
     Active Substance: SULFASALAZINE
  8. FOLIC ACID. [Concomitant]
     Active Substance: FOLIC ACID
  9. PROLASTIN?C [Suspect]
     Active Substance: .ALPHA.1-PROTEINASE INHIBITOR HUMAN
     Indication: ALPHA-1 ANTITRYPSIN DEFICIENCY
     Dosage: 4920 MG, Q.WK.
     Route: 042
     Dates: start: 20080731

REACTIONS (3)
  - Rheumatoid arthritis [Not Recovered/Not Resolved]
  - Fatigue [Not Recovered/Not Resolved]
  - Malaise [Not Recovered/Not Resolved]

NARRATIVE: CASE EVENT DATE: 2017
